FAERS Safety Report 4332440-3 (Version None)
Quarter: 2004Q2

REPORT INFORMATION
  Report Type: 
  Country: None (occurrence: None)
  Receive Date: 20040401
  Receipt Date: 20040316
  Transmission Date: 20050107
  Serious: No
  Sender: FDA-Public Use
  Company Number: 7665

PATIENT
  Age: 57 Year
  Sex: Female

DRUGS (1)
  1. METHOTREXATE [Suspect]
     Indication: ASTHMA

REACTIONS (3)
  - BIOPSY LIVER ABNORMAL [None]
  - HEPATIC FIBROSIS [None]
  - HEPATIC STEATOSIS [None]
